FAERS Safety Report 13669219 (Version 1)
Quarter: 2017Q2

REPORT INFORMATION
  Report Type: Spontaneous
  Country: JP (occurrence: JP)
  Receive Date: 20170620
  Receipt Date: 20170620
  Transmission Date: 20170830
  Serious: Yes (Other)
  Sender: FDA-Public Use
  Company Number: JP-MYLANLABS-2017M1036682

PATIENT

DRUGS (2)
  1. CARBAMAZEPINE. [Suspect]
     Active Substance: CARBAMAZEPINE
     Indication: EPILEPSY
     Route: 065
  2. ZONISAMIDE. [Concomitant]
     Active Substance: ZONISAMIDE
     Indication: EPILEPSY
     Route: 065

REACTIONS (4)
  - White matter lesion [Recovered/Resolved]
  - Diabetes insipidus [Unknown]
  - Hyponatraemia [Recovered/Resolved]
  - Withdrawal syndrome [Recovered/Resolved]
